FAERS Safety Report 5676228-X (Version None)
Quarter: 2008Q1

REPORT INFORMATION
  Report Type: 
  Country: None (occurrence: None)
  Receive Date: 20080321
  Receipt Date: 20080311
  Transmission Date: 20080703
  Serious: Yes (Other)
  Sender: FDA-Public Use
  Company Number: DE-ELI_LILLY_AND_COMPANY-DE200803002380

PATIENT
  Age: 62 Year
  Sex: Female

DRUGS (5)
  1. CYMBALTA [Suspect]
     Dosage: 90 MG, DAILY (1/D)
     Route: 048
     Dates: start: 20070901
  2. CYMBALTA [Suspect]
     Dosage: 60 MG, DAILY (1/D)
     Route: 048
  3. MAGNESIA [Concomitant]
     Dosage: UNK, 2/D
  4. PANTOZOL [Concomitant]
     Dosage: UNK, AS NEEDED
  5. PRAVASTATIN [Concomitant]
     Indication: HYPERCHOLESTEROLAEMIA

REACTIONS (3)
  - ARRHYTHMIA [None]
  - HEART RATE INCREASED [None]
  - HYPERTENSION [None]
